FAERS Safety Report 10250276 (Version 1)
Quarter: 2014Q2

REPORT INFORMATION
  Report Type: Spontaneous
  Country: CA (occurrence: CA)
  Receive Date: 20140620
  Receipt Date: 20140620
  Transmission Date: 20141212
  Serious: Yes (Death, Hospitalization, Other)
  Sender: FDA-Public Use
  Company Number: CA-B.I. PHARMACEUTICALS,INC./RIDGEFIELD-2014-BI-27669CN

PATIENT
  Age: 74 Year
  Sex: Female
  Weight: 113.4 kg

DRUGS (2)
  1. PRADAXA [Suspect]
     Indication: ATRIAL FIBRILLATION
     Route: 065
  2. BETA BLOCKER [Concomitant]
     Indication: HEART RATE INCREASED
     Route: 065

REACTIONS (2)
  - Myocardial infarction [Fatal]
  - Cardiac failure [Unknown]
